FAERS Safety Report 8432045-9 (Version None)
Quarter: 2012Q2

REPORT INFORMATION
  Report Type: 
  Country: None (occurrence: None)
  Receive Date: 20120613
  Receipt Date: 20120601
  Transmission Date: 20120825
  Serious: Yes (Hospitalization, Other)
  Sender: FDA-Public Use
  Company Number: US-JNJFOC-20120602015

PATIENT
  Sex: Male
  Weight: 87.54 kg

DRUGS (2)
  1. REMICADE [Suspect]
     Route: 042
     Dates: start: 20030416, end: 20110101
  2. REMICADE [Suspect]
     Indication: PSORIATIC ARTHROPATHY
     Route: 042
     Dates: start: 20110101

REACTIONS (3)
  - MUSCLE STRAIN [None]
  - MYOCARDIAL INFARCTION [None]
  - CHEST PAIN [None]
